FAERS Safety Report 6765567-7 (Version None)
Quarter: 2010Q2

REPORT INFORMATION
  Report Type: 
  Country: None (occurrence: None)
  Receive Date: 20100611
  Receipt Date: 20100608
  Transmission Date: 20101027
  Serious: Yes (Death, Life-Threatening, Hospitalization)
  Sender: FDA-Public Use
  Company Number: PHHY2010US25139

PATIENT
  Sex: Male

DRUGS (12)
  1. AFINITOR [Suspect]
     Indication: METASTATIC RENAL CELL CARCINOMA
     Dosage: 10 MG, QD
     Route: 048
     Dates: start: 20100130
  2. AFINITOR [Suspect]
     Indication: MALIGNANT URINARY TRACT NEOPLASM
  3. LOVENOX [Concomitant]
     Dosage: 60 MG, BID
  4. COUMADIN [Concomitant]
     Dosage: 2 MG DAILY
  5. ACETAMINOPHEN AND HYDROCODONE BITARTRATE [Concomitant]
     Dosage: 325/5 MG
  6. ALBUTEROL SULFATE AND IPRATROPIUM BROMIDE [Concomitant]
     Dosage: 4 TIMES A DAY
  7. NORVASC [Concomitant]
     Dosage: 10 MG DAILY
  8. TESSALON [Concomitant]
     Dosage: 200 MG, TID
  9. SINGULAIR [Concomitant]
     Dosage: 10 MG DAILY
  10. ZOFRAN [Concomitant]
     Indication: NAUSEA
     Dosage: 8 MG EVERY 8 HOURS
  11. ATIVAN [Concomitant]
     Indication: ANXIETY
     Dosage: 0.5 MG TO 1 MG EVERY 4-6 HOURS AS NEEDED
  12. ATIVAN [Concomitant]
     Indication: INSOMNIA

REACTIONS (11)
  - DEEP VEIN THROMBOSIS [None]
  - DYSPNOEA [None]
  - GENERAL PHYSICAL HEALTH DETERIORATION [None]
  - HYPOXIA [None]
  - LYMPHADENOPATHY [None]
  - MALIGNANT NEOPLASM PROGRESSION [None]
  - OEDEMA PERIPHERAL [None]
  - PERICARDIAL DRAINAGE [None]
  - PERICARDIAL EFFUSION [None]
  - PLEURAL EFFUSION [None]
  - PULMONARY HILUM MASS [None]
